FAERS Safety Report 6169746-1 (Version None)
Quarter: 2009Q2

REPORT INFORMATION
  Report Type: 
  Country: None (occurrence: None)
  Receive Date: 20090428
  Receipt Date: 20090415
  Transmission Date: 20091009
  Serious: Yes (Other)
  Sender: FDA-Public Use
  Company Number: PL-ROCHE-628018

PATIENT
  Sex: Female
  Weight: 63 kg

DRUGS (4)
  1. BONIVA [Suspect]
     Indication: OSTEOPOROSIS
     Dosage: FREQUENCY REPORTED AS 1 X 1 AMP.
     Route: 042
     Dates: start: 20090409
  2. KLIOGEST [Concomitant]
     Indication: OSTEOPOROSIS
     Dosage: DOSE REPORTED AS 1.
     Route: 048
     Dates: start: 20070101
  3. VITRUM-OSTEOMAG [Concomitant]
     Indication: OSTEOPOROSIS
     Dosage: DRUG NAME REPORTED AS VITRUM-CALCIUM.
     Route: 048
     Dates: start: 19980101
  4. VITRUM-OSTEOMAG [Concomitant]
     Route: 048

REACTIONS (11)
  - ARTHRALGIA [None]
  - BONE PAIN [None]
  - INFLUENZA LIKE ILLNESS [None]
  - MUSCLE CONTRACTIONS INVOLUNTARY [None]
  - MUSCLE CONTRACTURE [None]
  - MUSCLE FATIGUE [None]
  - MUSCULAR WEAKNESS [None]
  - MUSCULOSKELETAL PAIN [None]
  - MUSCULOSKELETAL STIFFNESS [None]
  - MYALGIA [None]
  - RESPIRATORY DISORDER [None]
